FAERS Safety Report 5088146-9 (Version None)
Quarter: 2006Q3

REPORT INFORMATION
  Report Type: 
  Country: None (occurrence: None)
  Receive Date: 20060727
  Receipt Date: 20060425
  Transmission Date: 20061208
  Serious: Yes (Other)
  Sender: FDA-Public Use
  Company Number: 2006011774

PATIENT
  Age: 84 Year
  Sex: Male
  Weight: 74.8435 kg

DRUGS (8)
  1. LYRICA [Suspect]
     Indication: POST HERPETIC NEURALGIA
     Dosage: 150 MG (75 MG,2 IN 1 D)
     Dates: start: 20060118
  2. INSULIN (INSULIN) [Concomitant]
  3. LIPITOR [Concomitant]
  4. ACTOS [Concomitant]
  5. LISINOPRIL [Concomitant]
  6. MULTIVITAMIN [Concomitant]
  7. FUROSEMIDE [Concomitant]
  8. POTASSIUM CHLORIDE [Concomitant]

REACTIONS (4)
  - DIZZINESS [None]
  - DYSARTHRIA [None]
  - GAIT DISTURBANCE [None]
  - PAIN [None]
